FAERS Safety Report 7765997-0 (Version None)
Quarter: 2011Q3

REPORT INFORMATION
  Report Type: 
  Country: None (occurrence: None)
  Receive Date: 20110921
  Receipt Date: 20110913
  Transmission Date: 20111222
  Serious: Yes (Other)
  Sender: FDA-Public Use
  Company Number: US-US-EMD SERONO, INC.-234235J09USA

PATIENT
  Sex: Female
  Weight: 57 kg

DRUGS (5)
  1. REBIF [Suspect]
     Indication: MULTIPLE SCLEROSIS
     Route: 058
     Dates: start: 20060907, end: 20080101
  2. REBIF [Suspect]
     Route: 058
     Dates: start: 20080101
  3. AMANTADINE HCL [Concomitant]
     Indication: FATIGUE
  4. MIRALAX [Concomitant]
     Indication: CONSTIPATION
  5. LUNESTA [Concomitant]
     Indication: SLEEP DISORDER

REACTIONS (5)
  - BLOOD COUNT ABNORMAL [None]
  - PAIN [None]
  - BENIGN PANCREATIC NEOPLASM [None]
  - INJECTION SITE ERYTHEMA [None]
  - PANCREATIC CYST [None]
